FAERS Safety Report 5538166-2 (Version None)
Quarter: 2007Q4

REPORT INFORMATION
  Report Type: 
  Country: None (occurrence: None)
  Receive Date: 20071207
  Receipt Date: 20071127
  Transmission Date: 20080405
  Serious: Yes (Hospitalization)
  Sender: FDA-Public Use
  Company Number: LB-GENENTECH-250396

PATIENT
  Age: 40 Year
  Sex: Male

DRUGS (5)
  1. MABTHERA [Suspect]
     Indication: LYMPHOMA
     Dosage: 700 MG, Q3W
     Route: 042
  2. DOXORUBICIN HCL [Suspect]
     Indication: LYMPHOMA
     Dosage: 180 MG, Q3W
     Route: 042
  3. CYCLOPHOSPHAMIDE [Concomitant]
     Indication: LYMPHOMA
  4. VINCRISTINE [Concomitant]
     Indication: LYMPHOMA
  5. PREDNISONE TAB [Concomitant]
     Indication: LYMPHOMA

REACTIONS (1)
  - MYOCARDIAL INFARCTION [None]
